FAERS Safety Report 20729361 (Version 1)
Quarter: 2022Q2

REPORT INFORMATION
  Report Type: Spontaneous
  Country: US (occurrence: None)
  Receive Date: 20220419
  Receipt Date: 20220419
  Transmission Date: 20220721
  Serious: Yes (Death)
  Sender: FDA-Public Use
  Company Number: None

PATIENT
  Age: 67 Year
  Sex: Male

DRUGS (1)
  1. INVEGA SUSTENNA [Suspect]
     Active Substance: PALIPERIDONE PALMITATE
     Indication: Mental disorder
     Dosage: FREQUENCY : MONTHLY;?
     Route: 030
     Dates: start: 20210602, end: 20220419

REACTIONS (1)
  - Death [None]

NARRATIVE: CASE EVENT DATE: 20220419
